FAERS Safety Report 9009066 (Version 1)
Quarter: 2013Q1

REPORT INFORMATION
  Report Type: Spontaneous
  Country: US (occurrence: US)
  Receive Date: 20130111
  Receipt Date: 20130111
  Transmission Date: 20140127
  Serious: Yes (Death)
  Sender: FDA-Public Use
  Company Number: US-JNJFOC-20130103979

PATIENT
  Sex: Male
  Weight: 51.26 kg

DRUGS (15)
  1. ZYTIGA [Suspect]
     Indication: PROSTATE CANCER METASTATIC
     Route: 048
     Dates: start: 20120210
  2. ZYTIGA [Suspect]
     Indication: PROSTATE CANCER METASTATIC
     Route: 048
     Dates: start: 20111129, end: 20120121
  3. DURAGESIC [Concomitant]
     Indication: PAIN
     Route: 062
  4. DURAGESIC [Concomitant]
     Indication: PAIN
     Route: 062
  5. AMBIEN [Concomitant]
     Route: 048
  6. CALCIUM [Concomitant]
     Route: 048
  7. CENTRUM SILVER [Concomitant]
     Route: 048
  8. LEVOTHYROXINE SODIUM [Concomitant]
     Route: 048
  9. PERCOCET [Concomitant]
     Route: 048
  10. PREDNISONE [Concomitant]
     Route: 048
  11. XGEVA [Concomitant]
     Route: 058
  12. ELIGARD [Concomitant]
     Route: 065
  13. QUADRAMET [Concomitant]
     Route: 065
  14. LHRH AGONIST [Concomitant]
     Route: 065
  15. DEMEROL [Concomitant]
     Route: 065
     Dates: start: 20120214

REACTIONS (1)
  - Death [Fatal]
